FAERS Safety Report 6060858-X (Version None)
Quarter: 2009Q1

REPORT INFORMATION
  Report Type: 
  Country: None (occurrence: None)
  Receive Date: 20090202
  Receipt Date: 20090123
  Transmission Date: 20090719
  Serious: Yes (Other)
  Sender: FDA-Public Use
  Company Number: FI-BAYER-200911803GPV

PATIENT
  Age: 43 Year
  Sex: Male

DRUGS (3)
  1. CIPROFLOXACIN HCL [Suspect]
     Indication: BORRELIA INFECTION
     Route: 048
     Dates: start: 20020101, end: 20020101
  2. KEFEXIN [Concomitant]
     Indication: DRUG USE FOR UNKNOWN INDICATION
     Route: 048
  3. AMOXICILLIN [Concomitant]
     Indication: DRUG USE FOR UNKNOWN INDICATION
     Route: 048

REACTIONS (3)
  - BRAIN INJURY [None]
  - NEUROPATHY PERIPHERAL [None]
  - TENDON PAIN [None]
